FAERS Safety Report 5520838-7 (Version None)
Quarter: 2007Q4

REPORT INFORMATION
  Report Type: 
  Country: None (occurrence: None)
  Receive Date: 20071119
  Receipt Date: 20071114
  Transmission Date: 20080405
  Serious: Yes (Death, Hospitalization)
  Sender: FDA-Public Use
  Company Number: A0694486A

PATIENT
  Sex: Male

DRUGS (3)
  1. COREG CR [Suspect]
     Indication: CARDIAC FAILURE CONGESTIVE
     Route: 048
  2. COREG [Suspect]
     Indication: CARDIAC FAILURE CONGESTIVE
     Route: 048
  3. MULTIPLE MEDICATIONS [Concomitant]

REACTIONS (5)
  - CONFUSIONAL STATE [None]
  - DEATH [None]
  - HAEMORRHAGE [None]
  - PELVIC FRACTURE [None]
  - SHOCK [None]
